FAERS Safety Report 21974607 (Version 2)
Quarter: 2023Q1

REPORT INFORMATION
  Report Type: Spontaneous
  Country: CN (occurrence: CN)
  Receive Date: 20230209
  Receipt Date: 20230222
  Transmission Date: 20230417
  Serious: Yes (Death, Other)
  Sender: FDA-Public Use
  Company Number: CN-PFIZER INC-PV202300024173

PATIENT
  Age: 84 Year
  Sex: Male

DRUGS (13)
  1. STAQUIS [Suspect]
     Active Substance: CRISABOROLE
     Indication: Rash erythematous
     Dosage: 0.033 DF, 2X/DAY
     Route: 061
     Dates: start: 20230206, end: 20230206
  2. STAQUIS [Suspect]
     Active Substance: CRISABOROLE
     Indication: Rash papulosquamous
  3. STAQUIS [Suspect]
     Active Substance: CRISABOROLE
     Indication: Pruritus
  4. STAQUIS [Suspect]
     Active Substance: CRISABOROLE
     Indication: Dermatitis atopic
  5. ALLANTOIN [Concomitant]
     Active Substance: ALLANTOIN
     Indication: Rash erythematous
     Dosage: 1 DF, 2X/DAY
     Route: 061
     Dates: start: 20230204, end: 20230205
  6. ALLANTOIN [Concomitant]
     Active Substance: ALLANTOIN
     Indication: Rash papulosquamous
     Dosage: 1 DF, 2X/DAY
     Route: 061
     Dates: start: 20230206, end: 20230206
  7. ALLANTOIN [Concomitant]
     Active Substance: ALLANTOIN
     Indication: Pruritus
  8. HERBALS [Concomitant]
     Active Substance: HERBALS
     Indication: Rash erythematous
     Dosage: 2 DF, 2X/DAY
     Dates: start: 20230204, end: 20230205
  9. HERBALS [Concomitant]
     Active Substance: HERBALS
     Indication: Rash papulosquamous
     Dosage: 2 DF, 2X/DAY
     Dates: start: 20230206, end: 20230206
  10. HERBALS [Concomitant]
     Active Substance: HERBALS
     Indication: Pruritus
  11. LEVOCETIRIZINE HYDROCHLORIDE OD [Concomitant]
     Indication: Rash erythematous
     Dosage: 1 DF, 1X/DAY
     Route: 048
     Dates: start: 20230204, end: 20230205
  12. LEVOCETIRIZINE HYDROCHLORIDE OD [Concomitant]
     Indication: Rash papulosquamous
     Dosage: 1 DF, 1X/DAY
     Route: 048
     Dates: start: 20230206, end: 20230206
  13. LEVOCETIRIZINE HYDROCHLORIDE OD [Concomitant]
     Indication: Pruritus

REACTIONS (6)
  - Death [Fatal]
  - Loss of consciousness [Unknown]
  - Shock [Unknown]
  - Application site pain [Unknown]
  - Cardiac discomfort [Unknown]
  - Off label use [Unknown]

NARRATIVE: CASE EVENT DATE: 20230206
